FAERS Safety Report 7999255-6 (Version None)
Quarter: 2011Q4

REPORT INFORMATION
  Report Type: 
  Country: None (occurrence: None)
  Receive Date: 20111221
  Receipt Date: 20111207
  Transmission Date: 20120403
  Serious: Yes (Death, Other)
  Sender: FDA-Public Use
  Company Number: AU-ROCHE-1020817

PATIENT

DRUGS (1)
  1. MABTHERA [Suspect]
     Indication: B-CELL LYMPHOMA

REACTIONS (3)
  - NEUTROPENIA [None]
  - THROMBOCYTOPENIA [None]
  - NEOPLASM MALIGNANT [None]
